FAERS Safety Report 22212821 (Version 1)
Quarter: 2023Q2

REPORT INFORMATION
  Report Type: Spontaneous
  Country: PT (occurrence: PT)
  Receive Date: 20230414
  Receipt Date: 20230414
  Transmission Date: 20230721
  Serious: Yes (Life-Threatening)
  Sender: FDA-Public Use
  Company Number: PT-BAXTER-2023BAX018140

PATIENT
  Age: 18 Year
  Sex: Male

DRUGS (2)
  1. LIDOCAINE [Suspect]
     Active Substance: LIDOCAINE
     Indication: Dental local anaesthesia
     Dosage: IN THE SECOND EPISODE
     Route: 065
  2. ARTICAINE [Suspect]
     Active Substance: ARTICAINE
     Indication: Dental local anaesthesia
     Dosage: IN FIRST EPISODE
     Route: 065

REACTIONS (2)
  - Local anaesthetic systemic toxicity [Recovered/Resolved]
  - Generalised tonic-clonic seizure [Recovered/Resolved]
